FAERS Safety Report 7436910-0 (Version None)
Quarter: 2011Q2

REPORT INFORMATION
  Report Type: 
  Country: None (occurrence: None)
  Receive Date: 20110426
  Receipt Date: 20110422
  Transmission Date: 20111010
  Serious: No
  Sender: FDA-Public Use
  Company Number: US-PFIZER INC-2011073387

PATIENT
  Sex: Female
  Weight: 74.37 kg

DRUGS (5)
  1. ACETAMINOPHEN [Concomitant]
     Indication: PAIN
     Dosage: UNK
  2. IBUPROFEN [Suspect]
     Indication: MUSCLE SPASMS
     Dosage: 600 MG, 2X/DAY
     Route: 048
     Dates: start: 20101201, end: 20110301
  3. ADVIL LIQUI-GELS [Suspect]
     Indication: MUSCLE SPASMS
     Dosage: 600 MG, 2X/DAY
     Route: 048
     Dates: start: 20110328, end: 20110329
  4. ADVIL LIQUI-GELS [Suspect]
     Indication: PAIN
  5. IBUPROFEN [Suspect]
     Indication: PAIN

REACTIONS (5)
  - INCORRECT DOSE ADMINISTERED [None]
  - ABDOMINAL DISCOMFORT [None]
  - FAECES DISCOLOURED [None]
  - DIARRHOEA [None]
  - ABDOMINAL PAIN [None]
